FAERS Safety Report 7334102-7 (Version None)
Quarter: 2011Q1

REPORT INFORMATION
  Report Type: 
  Country: None (occurrence: None)
  Receive Date: 20110307
  Receipt Date: 20110222
  Transmission Date: 20110831
  Serious: Yes (Death, Hospitalization, Other)
  Sender: FDA-Public Use
  Company Number: GB-PAR PHARMACEUTICAL, INC-2011SCPR002707

PATIENT
  Sex: Female

DRUGS (1)
  1. DEXAMETHASONE [Suspect]
     Indication: PRODUCT USED FOR UNKNOWN INDICATION
     Dosage: 4 MG, EVERY 6 HOURS
     Route: 065

REACTIONS (7)
  - HYPERGLYCAEMIA [None]
  - DEATH [None]
  - DIABETIC KETOACIDOSIS [None]
  - RENAL FAILURE ACUTE [None]
  - BRAIN OEDEMA [None]
  - URINARY TRACT INFECTION [None]
  - DIABETES INSIPIDUS [None]
